FAERS Safety Report 8435006-9 (Version None)
Quarter: 2012Q2

REPORT INFORMATION
  Report Type: 
  Country: None (occurrence: None)
  Receive Date: 20120614
  Receipt Date: 20120608
  Transmission Date: 20120825
  Serious: No
  Sender: FDA-Public Use
  Company Number: US-PFIZER INC-2012139334

PATIENT
  Age: 71 Year
  Sex: Female

DRUGS (4)
  1. NAPROSYN [Suspect]
     Dosage: UNK
  2. DAYPRO [Suspect]
     Dosage: UNK
  3. LEVOTHYROXINE SODIUM [Concomitant]
     Dosage: 112 MCG
  4. PRILOSEC [Concomitant]
     Indication: OESOPHAGITIS

REACTIONS (1)
  - MUSCLE SPASMS [None]
